FAERS Safety Report 23160517 (Version 2)
Quarter: 2024Q2

REPORT INFORMATION
  Report Type: Report from Study
  Country: US (occurrence: US)
  Receive Date: 20231108
  Receipt Date: 20240422
  Transmission Date: 20240716
  Serious: Yes (Hospitalization, Other)
  Sender: FDA-Public Use
  Company Number: US-JAZZ-2021-US-015350

PATIENT
  Age: 33 Year
  Sex: Female

DRUGS (12)
  1. XYREM [Suspect]
     Active Substance: SODIUM OXYBATE
     Indication: Narcolepsy
     Dosage: 2 GRAM, BID
     Route: 048
     Dates: start: 201111, end: 201202
  2. XYREM [Suspect]
     Active Substance: SODIUM OXYBATE
     Indication: Cataplexy
     Dosage: 3 GRAM, BID
     Route: 048
     Dates: start: 201203, end: 201209
  3. XYREM [Suspect]
     Active Substance: SODIUM OXYBATE
     Indication: Somnolence
     Dosage: 3 GRAM, BID
     Route: 048
     Dates: start: 201503, end: 201606
  4. XYREM [Suspect]
     Active Substance: SODIUM OXYBATE
     Dosage: 3.75 GRAM, BID
     Route: 048
     Dates: start: 201606, end: 20210813
  5. XYREM [Suspect]
     Active Substance: SODIUM OXYBATE
     Dosage: 4.5 GRAM, BID
  6. IBUPROFEN [Suspect]
     Active Substance: IBUPROFEN
     Indication: Product used for unknown indication
     Dosage: UNK
  7. FOLIC ACID\IRON\MINERALS\VITAMINS [Concomitant]
     Active Substance: FOLIC ACID\IRON\MINERALS\VITAMINS
  8. CLARITHROMYCIN [Concomitant]
     Active Substance: CLARITHROMYCIN
  9. ALCOHOL [Concomitant]
     Active Substance: ALCOHOL
  10. FISH OIL [Concomitant]
     Active Substance: FISH OIL
  11. DEXTROAMPHET SACCHARAT, AMPHET ASPARTATE, DEXTROAMPHET SULFATE AND AMP [Concomitant]
     Active Substance: AMPHETAMINE ASPARTATE\AMPHETAMINE ASPARTATE MONOHYDRATE\AMPHETAMINE SULFATE\DEXTROAMPHETAMINE SACCHA
  12. LEVONORGESTREL [Concomitant]
     Active Substance: LEVONORGESTREL

REACTIONS (12)
  - Nephrolithiasis [Recovered/Resolved]
  - Muscle rupture [Unknown]
  - Road traffic accident [Unknown]
  - Skin discolouration [Unknown]
  - Blood pressure decreased [Unknown]
  - Musculoskeletal stiffness [Not Recovered/Not Resolved]
  - Hypoaesthesia [Unknown]
  - Blood cholesterol increased [Unknown]
  - Arthropathy [Unknown]
  - Fracture [Unknown]
  - Calcinosis [Unknown]
  - Pain [Unknown]

NARRATIVE: CASE EVENT DATE: 20210801
